FAERS Safety Report 16317198 (Version 3)
Quarter: 2019Q2

REPORT INFORMATION
  Report Type: Spontaneous
  Country: US (occurrence: US)
  Receive Date: 20190515
  Receipt Date: 20190603
  Transmission Date: 20190711
  Serious: No
  Sender: FDA-Public Use
  Company Number: US-SA-2019SA131680

PATIENT
  Age: 79 Year
  Sex: Male

DRUGS (1)
  1. LANTUS SOLOSTAR [Suspect]
     Active Substance: INSULIN GLARGINE
     Indication: TYPE 2 DIABETES MELLITUS
     Dosage: 44 U, QD
     Route: 065

REACTIONS (5)
  - Cold sweat [Unknown]
  - Headache [Unknown]
  - Device operational issue [Unknown]
  - Incorrect dose administered [Unknown]
  - Blood glucose increased [Unknown]
